FAERS Safety Report 17110494 (Version 2)
Quarter: 2020Q1

REPORT INFORMATION
  Report Type: Spontaneous
  Country: IT (occurrence: IT)
  Receive Date: 20191204
  Receipt Date: 20200206
  Transmission Date: 20200409
  Serious: Yes (Hospitalization)
  Sender: FDA-Public Use
  Company Number: IT-ROCHE-2484494

PATIENT
  Age: 78 Year
  Sex: Female

DRUGS (14)
  1. IFOSFAMIDE. [Suspect]
     Active Substance: IFOSFAMIDE
     Indication: DIFFUSE LARGE B-CELL LYMPHOMA
     Route: 065
     Dates: start: 20190805, end: 20190908
  2. DOXORUBICIN [Concomitant]
     Active Substance: DOXORUBICIN
     Dosage: 3 CYCLES
     Route: 065
     Dates: start: 20171121, end: 20180105
  3. RITUXIMAB. [Suspect]
     Active Substance: RITUXIMAB
     Indication: DIFFUSE LARGE B-CELL LYMPHOMA
     Dosage: 2 CYCLES
     Route: 065
     Dates: start: 20190805, end: 20190908
  4. ETOPOSIDE. [Suspect]
     Active Substance: ETOPOSIDE
     Indication: DIFFUSE LARGE B-CELL LYMPHOMA
     Route: 065
     Dates: start: 20190805, end: 20190908
  5. PREDNISONE. [Concomitant]
     Active Substance: PREDNISONE
     Dosage: 3 CYCLES
     Route: 065
     Dates: start: 20170927, end: 20191019
  6. CYCLOPHOSPHAMIDE. [Concomitant]
     Active Substance: CYCLOPHOSPHAMIDE
     Dosage: 3 CYCLES
     Route: 065
     Dates: start: 20170927, end: 20191019
  7. EPIRUBICIN [Suspect]
     Active Substance: EPIRUBICIN
     Indication: DIFFUSE LARGE B-CELL LYMPHOMA
     Dosage: 2 CYCLES
     Route: 065
     Dates: start: 20190805, end: 20190908
  8. VINCRISTINE [Concomitant]
     Active Substance: VINCRISTINE
     Dosage: 3 CYCLES
     Route: 065
     Dates: start: 20171121, end: 20180105
  9. VINCRISTINE [Concomitant]
     Active Substance: VINCRISTINE
     Dosage: 3 CYCLES
     Route: 065
     Dates: start: 20170927, end: 20191019
  10. DOXORUBICIN [Concomitant]
     Active Substance: DOXORUBICIN
     Dosage: 3 CYCLES
     Route: 065
     Dates: start: 20170927, end: 20191019
  11. RITUXIMAB. [Suspect]
     Active Substance: RITUXIMAB
     Dosage: 3 CYCLES
     Route: 065
     Dates: start: 20170927, end: 20191019
  12. CYCLOPHOSPHAMIDE. [Concomitant]
     Active Substance: CYCLOPHOSPHAMIDE
     Dosage: 2 CYCLES
     Route: 065
     Dates: start: 20190805, end: 201909
  13. PREDNISONE. [Concomitant]
     Active Substance: PREDNISONE
     Dosage: 3 CYCLES
     Route: 065
     Dates: start: 20171121, end: 20180105
  14. ETOPOSIDE. [Suspect]
     Active Substance: ETOPOSIDE
     Route: 065
     Dates: start: 20171121, end: 20180105

REACTIONS (3)
  - Neutropenia [Unknown]
  - Gastroenteritis [Unknown]
  - Disease recurrence [Unknown]
